FAERS Safety Report 18142811 (Version 4)
Quarter: 2024Q1

REPORT INFORMATION
  Report Type: Report from Study
  Country: DE (occurrence: DE)
  Receive Date: 20200813
  Receipt Date: 20240331
  Transmission Date: 20240410
  Serious: Yes (Hospitalization, Other)
  Sender: FDA-Public Use
  Company Number: DE-CELLTRION INC.-2020DE025048

PATIENT

DRUGS (21)
  1. RITUXIMAB [Suspect]
     Active Substance: RITUXIMAB
     Indication: Rheumatoid arthritis
     Dosage: 1000 MG; DATE RECEIVED: 06 SEP 2020
     Route: 042
  2. RITUXIMAB [Suspect]
     Active Substance: RITUXIMAB
     Dosage: 1000 MG
     Route: 042
  3. METHOTREXATE [Suspect]
     Active Substance: METHOTREXATE
     Indication: Rheumatoid arthritis
     Route: 065
  4. ISOSORBIDE [Concomitant]
     Active Substance: ISOSORBIDE
  5. CHOLECALCIFEROL [Concomitant]
     Active Substance: CHOLECALCIFEROL
  6. AMITRIPTYLINE [Concomitant]
     Active Substance: AMITRIPTYLINE
  7. METHIMAZOLE [Concomitant]
     Active Substance: METHIMAZOLE
  8. DENOSUMAB [Concomitant]
     Active Substance: DENOSUMAB
     Indication: Osteoporosis
  9. TORSEMIDE [Concomitant]
     Active Substance: TORSEMIDE
  10. PANTOPRAZOLE [Concomitant]
     Active Substance: PANTOPRAZOLE
  11. BUPRENORPHINE [Concomitant]
     Active Substance: BUPRENORPHINE
  12. ATORVASTATIN [Concomitant]
     Active Substance: ATORVASTATIN
  13. FOLIC ACID [Concomitant]
     Active Substance: FOLIC ACID
  14. SIMVASTATIN [Concomitant]
     Active Substance: SIMVASTATIN
  15. MAGNESIUM [Concomitant]
     Active Substance: MAGNESIUM
  16. PREGABALIN [Concomitant]
     Active Substance: PREGABALIN
  17. CLOPIDOGREL [Concomitant]
     Active Substance: CLOPIDOGREL BISULFATE
  18. RAMIPRIL [Concomitant]
     Active Substance: RAMIPRIL
  19. PREDNISOLONE [Concomitant]
     Active Substance: PREDNISOLONE
  20. BISOPROLOL [Concomitant]
     Active Substance: BISOPROLOL\BISOPROLOL FUMARATE
  21. LEVETIRACETAM [Concomitant]
     Active Substance: LEVETIRACETAM

REACTIONS (5)
  - Acute kidney injury [Recovered/Resolved]
  - Dysuria [Recovered/Resolved]
  - Escherichia urinary tract infection [Recovered/Resolved]
  - Gastroenteritis [Recovered/Resolved]
  - Cystitis [Recovered/Resolved]

NARRATIVE: CASE EVENT DATE: 20181201
